FAERS Safety Report 5662448-7 (Version None)
Quarter: 2008Q1

REPORT INFORMATION
  Report Type: 
  Country: None (occurrence: None)
  Receive Date: 20080313
  Receipt Date: 20080305
  Transmission Date: 20080703
  Serious: Yes (Hospitalization)
  Sender: FDA-Public Use
  Company Number: PHBS2008SE02957

PATIENT
  Age: 79 Year
  Sex: Male

DRUGS (11)
  1. STALEVO [Suspect]
     Indication: PARKINSON'S DISEASE
     Dosage: 100/25/200 MG
     Route: 048
     Dates: start: 20060101, end: 20070901
  2. SINEMET [Concomitant]
  3. NITROMEX [Concomitant]
  4. SELOKEN [Concomitant]
  5. SUSCARD [Concomitant]
  6. SIMVASTATIN [Concomitant]
  7. IMDUR [Concomitant]
  8. ASPIRIN [Concomitant]
  9. CAVERJECT [Concomitant]
  10. SIFROL [Concomitant]
  11. NORVASC [Concomitant]

REACTIONS (3)
  - COLITIS [None]
  - COLONOSCOPY [None]
  - DIARRHOEA [None]
